FAERS Safety Report 6754553-9 (Version None)
Quarter: 2010Q2

REPORT INFORMATION
  Report Type: 
  Country: None (occurrence: None)
  Receive Date: 20100603
  Receipt Date: 20100527
  Transmission Date: 20101027
  Serious: Yes (Hospitalization)
  Sender: FDA-Public Use
  Company Number: FR-ABBOTT-10P-056-0647733-00

PATIENT
  Sex: Female

DRUGS (9)
  1. HUMIRA [Suspect]
     Indication: RHEUMATOID ARTHRITIS
     Route: 058
     Dates: start: 20060101, end: 20090319
  2. LEFLUNOMIDE [Suspect]
     Indication: RHEUMATOID ARTHRITIS
     Route: 048
     Dates: start: 20060101, end: 20090319
  3. SERETIDE [Concomitant]
     Indication: ASTHMA
  4. LERCANIDIPINE [Concomitant]
     Indication: HYPERTENSION
  5. ACETAMINOPHEN WITH PROPOXYPHENE HCL TAB [Concomitant]
     Indication: RHEUMATOID ARTHRITIS
  6. PANTOPRAZOLE [Concomitant]
     Indication: DRUG USE FOR UNKNOWN INDICATION
  7. PREDNISOLONE [Concomitant]
     Indication: DRUG USE FOR UNKNOWN INDICATION
     Dates: start: 20090317
  8. FLUCONAZOLE [Concomitant]
     Indication: DRUG USE FOR UNKNOWN INDICATION
     Dates: start: 20090317
  9. RULID [Concomitant]
     Indication: DRUG USE FOR UNKNOWN INDICATION
     Dates: start: 20090317

REACTIONS (2)
  - CHRONIC RESPIRATORY FAILURE [None]
  - LUNG INFECTION [None]
